FAERS Safety Report 7746410-6 (Version None)
Quarter: 2011Q3

REPORT INFORMATION
  Report Type: 
  Country: None (occurrence: None)
  Receive Date: 20110912
  Receipt Date: 20110912
  Transmission Date: 20111222
  Serious: Yes (Other)
  Sender: FDA-Public Use
  Company Number: None

PATIENT
  Sex: Female
  Weight: 108.6 kg

DRUGS (1)
  1. PHENYTOIN [Suspect]
     Indication: CONVULSION
     Dosage: PHENYTOIN ER 100 MG 3 CAPS QHS PO
     Route: 048
     Dates: start: 20110502, end: 20110908

REACTIONS (4)
  - CONVULSION [None]
  - TREATMENT FAILURE [None]
  - PRODUCT SUBSTITUTION ISSUE [None]
  - AURA [None]
